FAERS Safety Report 6250138-1 (Version None)
Quarter: 2009Q2

REPORT INFORMATION
  Report Type: 
  Country: None (occurrence: None)
  Receive Date: 20090626
  Receipt Date: 20090610
  Transmission Date: 20091009
  Serious: Yes (Hospitalization)
  Sender: FDA-Public Use
  Company Number: 2008S1009840

PATIENT
  Age: 71 Year
  Sex: Female

DRUGS (4)
  1. PHOSPHOSODA FLAVOR NOT SPECIFIED [Suspect]
     Indication: COLONOSCOPY
     Dosage: 90 ML;TOTAL;PO
     Route: 048
     Dates: start: 20060613, end: 20060613
  2. HYDROCHLOROTHIAZIDE [Concomitant]
  3. LISINOPRIL [Concomitant]
  4. BISACODYL [Concomitant]

REACTIONS (7)
  - ASTHENIA [None]
  - FATIGUE [None]
  - HAEMODIALYSIS [None]
  - INFLUENZA LIKE ILLNESS [None]
  - MALAISE [None]
  - RENAL FAILURE [None]
  - RENAL TRANSPLANT [None]
